FAERS Safety Report 7732751-5 (Version None)
Quarter: 2011Q3

REPORT INFORMATION
  Report Type: 
  Country: None (occurrence: None)
  Receive Date: 20110901
  Receipt Date: 20101012
  Transmission Date: 20111222
  Serious: Yes (Hospitalization)
  Sender: FDA-Public Use
  Company Number: GAM-279-10-US

PATIENT
  Age: 58 Year
  Sex: Female

DRUGS (3)
  1. OCTAGAM [Suspect]
     Indication: HYPOGAMMAGLOBULINAEMIA
     Dosage: 15 GM, IV, MONTHLY
     Route: 042
     Dates: start: 20100909
  2. OCTAGAM [Suspect]
     Indication: HYPOGAMMAGLOBULINAEMIA
     Dosage: 15 GM, IV, MONTHLY
     Route: 042
     Dates: start: 20100811
  3. OCTAGAM [Suspect]

REACTIONS (1)
  - CEREBROVASCULAR ACCIDENT [None]
